FAERS Safety Report 8833619 (Version 1)
Quarter: 2012Q4

REPORT INFORMATION
  Report Type: Report from Study
  Country: DE (occurrence: DE)
  Receive Date: 20121010
  Receipt Date: 20121010
  Transmission Date: 20130627
  Serious: Yes (Hospitalization)
  Sender: FDA-Public Use
  Company Number: DE-ROCHE-670790

PATIENT
  Age: 58 Year
  Sex: Male
  Weight: 51.8 kg

DRUGS (12)
  1. XELODA [Suspect]
     Indication: RECTAL CANCER
     Dosage: 1000 MG/M2 TWICE DAILY, DAY 1-15 OF 3 WEEK CYCLE DATE OF RECENT DOSE: 22 JAN 2010
     Route: 048
  2. XELODA [Suspect]
     Dosage: SCHEDULE: 1000 MG/M2 BID DAY 1-DAY15OF THREE WEEK CYCLE. DATE OF LAST DOSE PRIOR TO SAE: 12 JAN 2010
     Route: 048
  3. OXALIPLATIN [Suspect]
     Indication: RECTAL CANCER
     Dosage: 1, 15, 22 and 29
     Route: 042
     Dates: start: 20090803
  4. OXALIPLATIN [Suspect]
     Dosage: 130 mg/m2 on day 1 of three week cycle, date of recent dose: 22/Jan/2010
     Route: 042
     Dates: start: 20090803
  5. SACCHAROMYCES CEREVISIAE [Concomitant]
     Indication: PROPHYLAXIS AGAINST DIARRHOEA
     Route: 048
  6. SACCHAROMYCES CEREVISIAE [Concomitant]
     Dosage: PARENTERAL
     Route: 048
  7. FERRO-FOLSAN [Concomitant]
     Indication: HAEMOGLOBIN DECREASED
     Dosage: DOSE: UNKNOWN, 2/DAY
     Route: 048
  8. KALIUMCITRAT [Concomitant]
     Indication: HYPOKALAEMIA
     Dosage: FREQUENCY:1-0-1, FORM:FIZZY TABLET
     Route: 048
  9. KALIUMHYDROGENCARBONAT [Concomitant]
     Indication: HYPOKALAEMIA
     Route: 048
  10. ESOMEPRAZOLE [Concomitant]
     Indication: DYSPEPSIA
     Dosage: DOSE: UNKNOWN, DRUG REPORTED AS ESOMEPRAZOL
     Route: 048
  11. OXYGESIC [Concomitant]
     Indication: PAIN
     Dosage: FREQUENCY REPORTED AS 1-0-1 AS NEEDED
     Route: 048
  12. PARENTERAL [Concomitant]
     Indication: PROPHYLAXIS AGAINST DIARRHOEA
     Dosage: DOSE: UNKNOWN, 2/DAY. DRUG REPORTED AS PARENTEROL
     Route: 048

REACTIONS (7)
  - Wound dehiscence [Not Recovered/Not Resolved]
  - Gastrointestinal stoma complication [Not Recovered/Not Resolved]
  - Syncope [Not Recovered/Not Resolved]
  - Diarrhoea [Recovered/Resolved]
  - Oesophageal candidiasis [Recovered/Resolved]
  - Cystitis [Recovered/Resolved]
  - Gastrointestinal stoma complication [Recovered/Resolved]
